FAERS Safety Report 14536437 (Version 1)
Quarter: 2018Q1

REPORT INFORMATION
  Report Type: Spontaneous
  Country: US (occurrence: US)
  Receive Date: 20180215
  Receipt Date: 20180215
  Transmission Date: 20180509
  Serious: Yes (Hospitalization)
  Sender: FDA-Public Use
  Company Number: None

PATIENT
  Age: 85 Year
  Sex: Male
  Weight: 71.5 kg

DRUGS (11)
  1. VITAMIN B12 [Concomitant]
     Active Substance: CYANOCOBALAMIN
  2. LIDEX [Concomitant]
     Active Substance: FLUOCINONIDE
  3. PRILOSEC [Concomitant]
     Active Substance: OMEPRAZOLE MAGNESIUM
  4. DOCUSATE [Concomitant]
     Active Substance: DOCUSATE
  5. VITC [Concomitant]
  6. ASPIRIN EC [Suspect]
     Active Substance: ASPIRIN
     Indication: ATRIAL FLUTTER
     Route: 048
  7. TRANXENE [Concomitant]
     Active Substance: CLORAZEPATE DIPOTASSIUM
  8. PRAVACHOL [Concomitant]
     Active Substance: PRAVASTATIN SODIUM
  9. AMODIPINE [Concomitant]
  10. FE [Concomitant]
     Active Substance: IRON
  11. APAP [Concomitant]
     Active Substance: ACETAMINOPHEN

REACTIONS (2)
  - Epistaxis [None]
  - Therapy cessation [None]

NARRATIVE: CASE EVENT DATE: 20171020
